FAERS Safety Report 8456588-7 (Version None)
Quarter: 2012Q2

REPORT INFORMATION
  Report Type: 
  Country: None (occurrence: None)
  Receive Date: 20120621
  Receipt Date: 20120619
  Transmission Date: 20120825
  Serious: Yes (Hospitalization)
  Sender: FDA-Public Use
  Company Number: US-ROXANE LABORATORIES, INC.-2011-RO-01517RO

PATIENT
  Sex: Female
  Weight: 4 kg

DRUGS (3)
  1. FLUCONAZOLE [Suspect]
     Indication: ORAL CANDIDIASIS
     Dates: start: 20110816, end: 20110819
  2. FLUCONAZOLE [Suspect]
     Dates: start: 20110822, end: 20110822
  3. FLUCONAZOLE [Suspect]
     Dosage: 2 ML
     Dates: start: 20110823

REACTIONS (4)
  - HYPOPHAGIA [None]
  - LETHARGY [None]
  - VOMITING [None]
  - HYPERCALCAEMIA [None]
